FAERS Safety Report 17508236 (Version 1)
Quarter: 2020Q1

REPORT INFORMATION
  Report Type: Other
  Country: FR (occurrence: FR)
  Receive Date: 20200305
  Receipt Date: 20200305
  Transmission Date: 20200409
  Serious: Yes (Hospitalization)
  Sender: FDA-Public Use
  Company Number: FR-CELLTRION INC.-2020FR019831

PATIENT

DRUGS (2)
  1. BENDAMUSTINE [Suspect]
     Active Substance: BENDAMUSTINE
     Indication: LYMPHOMA
     Dosage: 1 DF
     Dates: start: 201912
  2. RITUXIMAB (UNKNOWN) [Suspect]
     Active Substance: RITUXIMAB
     Indication: LYMPHOMA
     Dosage: 1 DF
     Route: 042
     Dates: start: 201910, end: 201912

REACTIONS (1)
  - Prinzmetal angina [Recovered/Resolved]

NARRATIVE: CASE EVENT DATE: 201912
